FAERS Safety Report 5724007-7 (Version None)
Quarter: 2008Q2

REPORT INFORMATION
  Report Type: 
  Country: None (occurrence: None)
  Receive Date: 20080430
  Receipt Date: 20080423
  Transmission Date: 20081010
  Serious: Yes (Hospitalization, Other)
  Sender: FDA-Public Use
  Company Number: FR-WYE-G01452908

PATIENT
  Sex: Female

DRUGS (7)
  1. RAPAMUNE [Suspect]
     Indication: PROPHYLAXIS AGAINST TRANSPLANT REJECTION
     Dosage: 3 MG TOTAL DAILY
     Route: 048
     Dates: start: 20020101, end: 20080301
  2. RAPAMUNE [Suspect]
     Dosage: 2 MG TOTAL DAILY
     Route: 048
     Dates: start: 20080301, end: 20080401
  3. RAPAMUNE [Suspect]
     Route: 048
     Dates: start: 20080422
  4. ELISOR [Concomitant]
     Indication: HYPERCHOLESTEROLAEMIA
     Route: 048
  5. TAREG [Concomitant]
     Indication: HYPERTENSION
     Route: 048
  6. CELLCEPT [Concomitant]
     Dosage: 750 MG TOTAL DAILY
  7. DETENSIEL [Concomitant]
     Indication: HYPERTENSION
     Route: 048

REACTIONS (7)
  - ANAEMIA [None]
  - BRONCHITIS [None]
  - IMMUNOSUPPRESSANT DRUG LEVEL INCREASED [None]
  - PNEUMONIA FUNGAL [None]
  - PNEUMONIA PNEUMOCOCCAL [None]
  - PYREXIA [None]
  - THROMBOCYTOPENIA [None]
